FAERS Safety Report 19857392 (Version 2)
Quarter: 2021Q4

REPORT INFORMATION
  Report Type: Spontaneous
  Country: US (occurrence: US)
  Receive Date: 20210920
  Receipt Date: 20211118
  Transmission Date: 20220303
  Serious: Yes (Hospitalization)
  Sender: FDA-Public Use
  Company Number: US-NOVARTISPH-NVSC2021US205381

PATIENT
  Sex: Female

DRUGS (1)
  1. ADAKVEO [Suspect]
     Active Substance: CRIZANLIZUMAB-TMCA
     Indication: Sickle cell disease
     Route: 042

REACTIONS (7)
  - Pain in extremity [Unknown]
  - Hypoaesthesia [Unknown]
  - Movement disorder [Unknown]
  - Nausea [Unknown]
  - Somnolence [Unknown]
  - Injection site pain [Unknown]
  - Drug ineffective [Unknown]
